FAERS Safety Report 12743252 (Version 2)
Quarter: 2016Q4

REPORT INFORMATION
  Report Type: Spontaneous
  Country: US (occurrence: US)
  Receive Date: 20160914
  Receipt Date: 20161006
  Transmission Date: 20170207
  Serious: No
  Sender: FDA-Public Use
  Company Number: US-TEVA-688493ACC

PATIENT
  Age: 26 Year
  Sex: Female
  Weight: 54.48 kg

DRUGS (3)
  1. TEA PILL [Concomitant]
     Indication: NUTRITIONAL SUPPLEMENTATION
  2. MULTI- VITAMIN [Concomitant]
     Indication: NUTRITIONAL SUPPLEMENTATION
  3. PLAN B ONE-STEP [Suspect]
     Active Substance: LEVONORGESTREL
     Indication: POST COITAL CONTRACEPTION
     Dates: start: 20160824, end: 20160824

REACTIONS (2)
  - Vulvovaginal pain [Recovered/Resolved]
  - Dysmenorrhoea [Recovered/Resolved]

NARRATIVE: CASE EVENT DATE: 20160824
